FAERS Safety Report 6060244-2 (Version None)
Quarter: 2009Q1

REPORT INFORMATION
  Report Type: 
  Country: None (occurrence: None)
  Receive Date: 20090129
  Receipt Date: 20090114
  Transmission Date: 20090719
  Serious: Yes (Death, Hospitalization, Other)
  Sender: FDA-Public Use
  Company Number: 2008002800

PATIENT
  Age: 67 Year
  Sex: Male

DRUGS (11)
  1. ERLOTINIB         (ERLOTINIB) [Suspect]
     Indication: NON-SMALL CELL LUNG CANCER
     Dosage: (150 MG, QD) ,ORAL
     Route: 048
     Dates: start: 20080908, end: 20081017
  2. ASPIRIN [Concomitant]
  3. AMLODIPINE [Concomitant]
  4. LACTULOSE [Concomitant]
  5. DOMPERIDONE (DOMPERIDONE) [Concomitant]
  6. DIGOXIN [Concomitant]
  7. DILTIAZEM [Concomitant]
  8. FUROSEMIDE (FUROSEMIDE) [Concomitant]
  9. DEXAMETHASONE TAB [Concomitant]
  10. DIPYRIDAMOLE [Concomitant]
  11. FLUCONAZOLE [Concomitant]

REACTIONS (9)
  - BRONCHOPNEUMONIA [None]
  - CARDIAC FAILURE CONGESTIVE [None]
  - GENERAL PHYSICAL HEALTH DETERIORATION [None]
  - MALIGNANT NEOPLASM PROGRESSION [None]
  - MUCOSAL INFLAMMATION [None]
  - NON-SMALL CELL LUNG CANCER [None]
  - PLEURAL EFFUSION [None]
  - PULMONARY EMBOLISM [None]
  - RASH [None]
